FAERS Safety Report 8267643-9 (Version None)
Quarter: 2012Q2

REPORT INFORMATION
  Report Type: 
  Country: None (occurrence: None)
  Receive Date: 20120409
  Receipt Date: 20120402
  Transmission Date: 20120825
  Serious: Yes (Death)
  Sender: FDA-Public Use
  Company Number: PHEH2012US007479

PATIENT
  Sex: Female

DRUGS (17)
  1. FUROSEMIDE [Concomitant]
  2. AMLODIPINE BESYLATE [Concomitant]
  3. VICODIN HP [Concomitant]
  4. ASMANEX TWISTHALER [Concomitant]
  5. SINGULAIR [Concomitant]
  6. CRESTOR [Concomitant]
  7. MIRALAX [Concomitant]
  8. TOBI [Suspect]
     Dosage: 300 MG, BID
     Dates: start: 20120101
  9. FLECAINIDE ACETATE [Concomitant]
  10. BROVANA [Concomitant]
  11. M.V.I. [Concomitant]
  12. NEXIUM [Concomitant]
  13. POTASSIUM CHLORIDE [Concomitant]
  14. XOPENEX HFA [Concomitant]
  15. PREDNISONE [Concomitant]
  16. FENTANYL CITRATE [Concomitant]
  17. METOPROLOL TARTRATE [Concomitant]

REACTIONS (1)
  - DEATH [None]
